FAERS Safety Report 16790797 (Version 2)
Quarter: 2019Q3

REPORT INFORMATION
  Report Type: Spontaneous
  Country: CH (occurrence: CH)
  Receive Date: 20190910
  Receipt Date: 20190927
  Transmission Date: 20191005
  Serious: Yes (Other)
  Sender: FDA-Public Use
  Company Number: CH-SA-2019SA249268

PATIENT
  Age: 35 Year
  Sex: Female

DRUGS (5)
  1. SUMATRIPTAN. [Concomitant]
     Active Substance: SUMATRIPTAN
     Indication: MIGRAINE
     Dosage: 50 MG DURING ATTACK
  2. VITAMIN D [VITAMIN D NOS] [Concomitant]
     Active Substance: VITAMIN D NOS
     Indication: RELAPSING-REMITTING MULTIPLE SCLEROSIS
     Dosage: 10 DROPS
     Route: 048
  3. LEMTRADA [Suspect]
     Active Substance: ALEMTUZUMAB
     Dosage: 60 MG, UNK
     Route: 041
     Dates: start: 20170612, end: 20170616
  4. LEMTRADA [Suspect]
     Active Substance: ALEMTUZUMAB
     Indication: RELAPSING-REMITTING MULTIPLE SCLEROSIS
     Dosage: 36 MG, UNK
     Route: 041
     Dates: start: 20180702, end: 20180704
  5. COPPER IUD [Concomitant]
     Active Substance: COPPER
     Indication: CONTRACEPTION
     Route: 015

REACTIONS (3)
  - Rheumatoid arthritis [Recovering/Resolving]
  - Polyarthritis [Recovering/Resolving]
  - C-reactive protein increased [Unknown]

NARRATIVE: CASE EVENT DATE: 2019
